FAERS Safety Report 17197906 (Version 1)
Quarter: 2019Q4

REPORT INFORMATION
  Report Type: Spontaneous
  Country: SE (occurrence: SE)
  Receive Date: 20191225
  Receipt Date: 20191225
  Transmission Date: 20200122
  Serious: Yes (Hospitalization)
  Sender: FDA-Public Use
  Company Number: SE-TEVA-2019-SE-1156134

PATIENT
  Sex: Female

DRUGS (5)
  1. IMOVANE [Suspect]
     Active Substance: ZOPICLONE
     Dosage: 1 IMOVANE
     Route: 048
     Dates: start: 20180707, end: 20180707
  2. CITALOPRAM [Suspect]
     Active Substance: CITALOPRAM HYDROBROMIDE
     Dosage: 4 CITALOPRAM
     Route: 048
     Dates: start: 20180707, end: 20180707
  3. IMDUR [Suspect]
     Active Substance: ISOSORBIDE MONONITRATE
     Dosage: 2 IMDUR
     Route: 048
     Dates: start: 20180707, end: 20180707
  4. RAMIPRIL. [Suspect]
     Active Substance: RAMIPRIL
     Dosage: 2 RAMIPRIL
     Route: 048
     Dates: start: 20180707, end: 20180707
  5. PROPAVAN [Suspect]
     Active Substance: PROPIOMAZINE
     Dosage: 2 PROPAVAN
     Route: 048
     Dates: start: 20180707, end: 20180707

REACTIONS (2)
  - Intentional self-injury [Unknown]
  - Intentional overdose [Unknown]

NARRATIVE: CASE EVENT DATE: 20180707
